FAERS Safety Report 8367587-8 (Version None)
Quarter: 2012Q2

REPORT INFORMATION
  Report Type: 
  Country: None (occurrence: None)
  Receive Date: 20120517
  Receipt Date: 20120514
  Transmission Date: 20120825
  Serious: Yes (Hospitalization)
  Sender: FDA-Public Use
  Company Number: US-PFIZER INC-2012097140

PATIENT
  Sex: Female
  Weight: 88.435 kg

DRUGS (10)
  1. DILTIAZEM [Concomitant]
     Dosage: 240 MG, UNK
  2. SULFAMETHOXAZOLE [Concomitant]
     Dosage: UNK
  3. HUMULIN N [Concomitant]
     Dosage: 10 ML, (VIAL 35 U. AM + 26 U PM)
  4. RAPAMUNE [Suspect]
     Indication: RENAL TRANSPLANT
     Dosage: 3 MG, DAILY
     Dates: start: 20070301, end: 20120101
  5. ZOLEDRONIC ACID [Concomitant]
     Dosage: UNK, ONCE A YEAR
     Route: 042
  6. CELLCEPT [Concomitant]
     Dosage: 250 MG, (2 AM + 2 PM)
  7. SYNTHROID [Concomitant]
     Dosage: 200 MG, UNK
  8. FERREX FORTE [Concomitant]
     Dosage: 150 MG, 2X/DAY
  9. HUMULIN R [Concomitant]
     Dosage: 10 ML, AS NEEDED, (VIAL 20 U WITH EACH MEAL + SLIDING SCALE)
  10. KEPPRA [Concomitant]
     Dosage: 750 MG, 2X/DAY (IN AM + IN PM)

REACTIONS (4)
  - OXYGEN SATURATION DECREASED [None]
  - CIRCULATORY COLLAPSE [None]
  - CHRONIC OBSTRUCTIVE PULMONARY DISEASE [None]
  - PULMONARY FIBROSIS [None]
